FAERS Safety Report 4464840-5 (Version None)
Quarter: 2004Q4

REPORT INFORMATION
  Report Type: 
  Country: None (occurrence: None)
  Receive Date: 20041004
  Receipt Date: 20031028
  Transmission Date: 20050328
  Serious: No
  Sender: FDA-Public Use
  Company Number: 354379

PATIENT
  Age: 81 Year
  Sex: Female

DRUGS (8)
  1. COREG [Suspect]
     Dosage: 3.125MG TWICE PER DAY
     Route: 048
     Dates: start: 20031022
  2. ASPIRIN [Concomitant]
  3. MULTI-VITAMIN [Concomitant]
  4. SYNTHROID [Concomitant]
  5. BEXTRA [Concomitant]
  6. DIOVAN [Concomitant]
  7. SPIRONOLACTONE [Concomitant]
  8. LASIX [Concomitant]

REACTIONS (1)
  - INSOMNIA [None]
